FAERS Safety Report 6640951-0 (Version None)
Quarter: 2010Q1

REPORT INFORMATION
  Report Type: 
  Country: None (occurrence: None)
  Receive Date: 20100302
  Receipt Date: 20091202
  Transmission Date: 20100710
  Serious: No
  Sender: FDA-Public Use
  Company Number: 2009306772

PATIENT
  Age: 72 Year
  Sex: Male
  Weight: 111.1 kg

DRUGS (6)
  1. TOVIAZ [Suspect]
     Indication: INCONTINENCE
     Dosage: 4 M, 1X/DAY
     Dates: start: 20090101
  2. TOVIAZ [Suspect]
     Indication: MICTURITION URGENCY
     Dosage: 4 M, 1X/DAY
     Dates: start: 20090101
  3. LIPITOR [Concomitant]
  4. NEXIUM [Concomitant]
  5. ACTOS [Concomitant]
  6. METOPROLOL (METOPROLOL) [Concomitant]

REACTIONS (1)
  - DRUG INEFFECTIVE [None]
